FAERS Safety Report 6661501 (Version 2)
Quarter: 2013Q1

REPORT INFORMATION
  Report Type: Spontaneous
  Country: NZ (occurrence: None)
  Receive Date: 20080528
  Receipt Date: 20130118
  Transmission Date: 20140127
  Serious: Yes (Hospitalization)
  Sender: FDA-Public Use
  Company Number: 2008AP001251

PATIENT
  Age: 40 Year
  Sex: Male

DRUGS (2)
  1. CARBAMAZEPINE [Suspect]
     Dosage: 5 YR
  2. FLUCLOXACILLIN SODIUM MONOHYDRATE [Suspect]
     Dosage: PO
     Route: 048

REACTIONS (8)
  - DRUG INTERACTION [None]
  - ANGLE CLOSURE GLAUCOMA [None]
  - CHOROIDAL EFFUSION [None]
  - VISUAL ACUITY REDUCED [None]
  - CORNEAL OEDEMA [None]
  - FLAT ANTERIOR CHAMBER OF EYE [None]
  - PUPIL FIXED [None]
  - VISUAL FIELD DEFECT [None]
